FAERS Safety Report 7497777-8 (Version None)
Quarter: 2011Q2

REPORT INFORMATION
  Report Type: 
  Country: None (occurrence: None)
  Receive Date: 20110524
  Receipt Date: 20110518
  Transmission Date: 20111010
  Serious: Yes (Hospitalization, Other)
  Sender: FDA-Public Use
  Company Number: MX-BRISTOL-MYERS SQUIBB COMPANY-15736804

PATIENT
  Age: 66 Year
  Sex: Female

DRUGS (4)
  1. METHOTREXATE [Suspect]
     Dates: start: 20081101, end: 20110509
  2. CAPTOPRIL [Concomitant]
     Dates: start: 20060101
  3. ABATACEPT [Suspect]
     Indication: RHEUMATOID ARTHRITIS
     Route: 058
     Dates: start: 20090311
  4. METFORMIN [Concomitant]
     Dates: start: 20060101

REACTIONS (3)
  - ANAEMIA [None]
  - PULMONARY TUBERCULOSIS [None]
  - LOBAR PNEUMONIA [None]
